FAERS Safety Report 7366126-8 (Version None)
Quarter: 2011Q1

REPORT INFORMATION
  Report Type: 
  Country: None (occurrence: None)
  Receive Date: 20110322
  Receipt Date: 20110308
  Transmission Date: 20110831
  Serious: Yes (Hospitalization)
  Sender: FDA-Public Use
  Company Number: US-JNJFOC-20070302185

PATIENT
  Sex: Male
  Weight: 47.7 kg

DRUGS (3)
  1. INFLIXIMAB [Suspect]
     Dosage: 8TH DOSE
     Route: 042
  2. INFLIXIMAB [Suspect]
     Indication: INFLAMMATORY BOWEL DISEASE
     Dosage: 11 DOSES
     Route: 042
  3. INFLIXIMAB [Suspect]
     Dosage: TOTAL 14 DOSES
     Route: 042

REACTIONS (2)
  - PELVIC ABSCESS [None]
  - ABDOMINAL PAIN [None]
